FAERS Safety Report 8914804 (Version 1)
Quarter: 2012Q4

REPORT INFORMATION
  Report Type: 
  Country: US (occurrence: US)
  Receive Date: 20121119
  Receipt Date: 20121119
  Transmission Date: 20130627
  Serious: Yes (Death, Hospitalization, Other)
  Sender: FDA-Public Use
  Company Number: US-CELGENEUS-163-21880-12083337

PATIENT
  Sex: Male

DRUGS (1)
  1. REVLIMID [Suspect]
     Indication: WALDENSTROM^S MACROGLOBULINEMIA
     Dosage: 5 Milligram
     Route: 048
     Dates: start: 20120731, end: 20120912

REACTIONS (4)
  - Death [Fatal]
  - Stomatitis [Not Recovered/Not Resolved]
  - Squamous cell carcinoma of skin [Unknown]
  - Pancytopenia [Recovered/Resolved]
